FAERS Safety Report 9887326 (Version 2)
Quarter: 2014Q1

REPORT INFORMATION
  Report Type: Report from Study
  Country: PT (occurrence: GB)
  Receive Date: 20140211
  Receipt Date: 20140211
  Transmission Date: 20141002
  Serious: Yes (Death)
  Sender: FDA-Public Use
  Company Number: PT-ROCHE-1340593

PATIENT
  Sex: 0

DRUGS (3)
  1. RITUXIMAB [Suspect]
     Indication: MYOPATHY
     Route: 065
  2. PREDNISOLONE [Concomitant]
     Indication: MYOPATHY
     Route: 065
  3. CYCLOSPORINE [Concomitant]
     Indication: MYOPATHY
     Route: 065

REACTIONS (5)
  - Infection [Fatal]
  - Cardiovascular disorder [Fatal]
  - Neoplasm [Fatal]
  - Respiratory failure [Fatal]
  - Injury [Fatal]
